FAERS Safety Report 4557014-0 (Version None)
Quarter: 2005Q1

REPORT INFORMATION
  Report Type: 
  Country: None (occurrence: None)
  Receive Date: 20050103
  Receipt Date: 20041119
  Transmission Date: 20050727
  Serious: Yes (Other)
  Sender: FDA-Public Use
  Company Number: 2004UW18865

PATIENT
  Age: 51 Year
  Sex: Male
  Weight: 68.4932 kg

DRUGS (5)
  1. CRESTOR [Suspect]
     Indication: HYPERLIPIDAEMIA
     Dosage: 5 MG QD PO
     Route: 048
     Dates: start: 20040201, end: 20040801
  2. ZOCOR [Suspect]
  3. PREDNISONE [Concomitant]
  4. FLORINEP [Concomitant]
  5. ASPIRIN [Concomitant]

REACTIONS (3)
  - AURA [None]
  - BALANCE DISORDER [None]
  - VISUAL DISTURBANCE [None]
